FAERS Safety Report 7559380-0 (Version None)
Quarter: 2011Q2

REPORT INFORMATION
  Report Type: 
  Country: None (occurrence: None)
  Receive Date: 20110617
  Receipt Date: 20110617
  Transmission Date: 20111010
  Serious: Yes (Hospitalization)
  Sender: FDA-Public Use
  Company Number: None

PATIENT
  Age: 73 Year
  Sex: Male
  Weight: 83 kg

DRUGS (2)
  1. ISOSORBIDE MONONITRATE [Suspect]
     Indication: ANGINA PECTORIS
     Dosage: 30 MG EVERY DAY PO
     Route: 048
     Dates: start: 20100510, end: 20100524
  2. ISOSORBIDE MONONITRATE [Suspect]
     Indication: PALPITATIONS
     Dosage: 30 MG EVERY DAY PO
     Route: 048
     Dates: start: 20100510, end: 20100524

REACTIONS (2)
  - HYPOTENSION [None]
  - DIZZINESS [None]
